FAERS Safety Report 6813228-8 (Version None)
Quarter: 2010Q3

REPORT INFORMATION
  Report Type: 
  Country: None (occurrence: None)
  Receive Date: 20100701
  Receipt Date: 20100622
  Transmission Date: 20110219
  Serious: Yes (Other)
  Sender: FDA-Public Use
  Company Number: NL-PFIZER INC-2010077528

PATIENT
  Age: 60 Year
  Sex: Female

DRUGS (2)
  1. TOVIAZ [Suspect]
     Indication: HYPERTONIC BLADDER
     Dosage: 4 MG, 1X/DAY
     Route: 048
     Dates: start: 20100331, end: 20100518
  2. TOVIAZ [Suspect]
     Dosage: 8 MG, 1X/DAY
     Route: 048
     Dates: start: 20100519, end: 20100526

REACTIONS (3)
  - DRUG INEFFECTIVE [None]
  - EYE SWELLING [None]
  - LIP SWELLING [None]
